FAERS Safety Report 5242067-7 (Version None)
Quarter: 2007Q1

REPORT INFORMATION
  Report Type: 
  Country: None (occurrence: None)
  Receive Date: 20070212
  Receipt Date: 20070205
  Transmission Date: 20070707
  Serious: Yes (Hospitalization)
  Sender: FDA-Public Use
  Company Number: 163-20785-07020187

PATIENT
  Sex: Female

DRUGS (1)
  1. THALOMID [Suspect]
     Indication: MALIGNANT NEOPLASM OF UTERINE ADNEXA
     Dosage: 300 MG, 6 IN 1 D, ORAL
     Route: 048
     Dates: start: 20061001

REACTIONS (1)
  - COLLAPSE OF LUNG [None]
